FAERS Safety Report 12533313 (Version 1)
Quarter: 2016Q3

REPORT INFORMATION
  Report Type: Spontaneous
  Country: US (occurrence: US)
  Receive Date: 20160706
  Receipt Date: 20160706
  Transmission Date: 20161109
  Serious: Yes (Other)
  Sender: FDA-Public Use
  Company Number: US-MUNDIPHARMA DS AND PHARMACOVIGILANCE-USA-2015-0128165

PATIENT
  Sex: Female

DRUGS (2)
  1. CORTISOL                           /00028601/ [Concomitant]
     Active Substance: HYDROCORTISONE
     Indication: PRODUCT USED FOR UNKNOWN INDICATION
     Route: 065
  2. BUTRANS [Suspect]
     Active Substance: BUPRENORPHINE
     Indication: EHLERS-DANLOS SYNDROME
     Dosage: 15 MCG/HR, WEEKLY
     Route: 062
     Dates: start: 201412

REACTIONS (10)
  - Disturbance in attention [Unknown]
  - General physical condition abnormal [Unknown]
  - Menopause [Unknown]
  - Asthenia [Unknown]
  - Drug dependence [Unknown]
  - Product adhesion issue [Unknown]
  - Hot flush [Unknown]
  - Diabetes mellitus [Unknown]
  - Dizziness [Unknown]
  - Drug ineffective [Unknown]
